FAERS Safety Report 6092361-5 (Version None)
Quarter: 2009Q1

REPORT INFORMATION
  Report Type: 
  Country: None (occurrence: None)
  Receive Date: 20090223
  Receipt Date: 20090223
  Transmission Date: 20090719
  Serious: No
  Sender: FDA-Public Use
  Company Number: None

PATIENT
  Sex: Male
  Weight: 87.73 kg

DRUGS (1)
  1. CITALOPRAM HYDROBROMIDE [Suspect]
     Dosage: 40 MG TABLE6 80 MG QD ORAL
     Route: 048
     Dates: start: 20080428, end: 20090221

REACTIONS (1)
  - SEXUAL DYSFUNCTION [None]
